FAERS Safety Report 11339789 (Version 1)
Quarter: 2015Q3

REPORT INFORMATION
  Report Type: Spontaneous
  Country: US (occurrence: US)
  Receive Date: 20150805
  Receipt Date: 20150805
  Transmission Date: 20151125
  Serious: No
  Sender: FDA-Public Use
  Company Number: US-AMGEN-USASP2015077609

PATIENT
  Age: 25 Year
  Sex: Female

DRUGS (1)
  1. ENBREL [Suspect]
     Active Substance: ETANERCEPT
     Indication: PSORIASIS
     Dosage: 50 MG, 2 TIMES/WK (72-96 HRS APART)
     Route: 058
     Dates: start: 2010, end: 201412

REACTIONS (2)
  - Psoriasis [Unknown]
  - Pregnancy [Unknown]

NARRATIVE: CASE EVENT DATE: 201412
